FAERS Safety Report 15590205 (Version 4)
Quarter: 2018Q4

REPORT INFORMATION
  Report Type: Spontaneous
  Country: JP (occurrence: JP)
  Receive Date: 20181106
  Receipt Date: 20181218
  Transmission Date: 20190205
  Serious: Yes (Hospitalization, Other)
  Sender: FDA-Public Use
  Company Number: JP-GLAXOSMITHKLINE-JP2018JPN191376

PATIENT
  Age: 77 Year
  Sex: Female

DRUGS (13)
  1. DONEPEZIL HYDROCHLORIDE OD [Concomitant]
     Dosage: 5 MG, QD, MORNING
     Dates: start: 20181017
  2. FUROSEMIDE. [Concomitant]
     Active Substance: FUROSEMIDE
     Dosage: 20 MG, 1D
     Dates: start: 201701, end: 20181009
  3. REQUIP [Suspect]
     Active Substance: ROPINIROLE HYDROCHLORIDE
     Dosage: 4 MG, 1D
     Route: 048
     Dates: start: 20181019
  4. DOPACOL [Concomitant]
     Active Substance: CARBIDOPA\LEVODOPA
     Indication: PARKINSON^S DISEASE
     Dosage: 1 DF, TID, AFTER EACH MEALS
     Dates: start: 20171019
  5. JANUVIA TABLET (SITAGLIPTIN PHOSPHATE HYDRATE) [Concomitant]
     Indication: DIABETES MELLITUS
     Dosage: 50 MG, QD, MORNING
     Dates: start: 20171019
  6. REQUIP [Suspect]
     Active Substance: ROPINIROLE HYDROCHLORIDE
     Dosage: 4 MG, 1D
     Route: 048
     Dates: start: 201701
  7. REQUIP [Suspect]
     Active Substance: ROPINIROLE HYDROCHLORIDE
     Dosage: 8 MG, 1D
     Route: 048
     Dates: start: 20180926, end: 20181016
  8. CONIEL [Concomitant]
     Active Substance: BENIDIPINE HYDROCHLORIDE
     Indication: HYPERTENSION
     Dosage: 4 MG, QD, MORNING
     Dates: start: 20171019
  9. DONEPEZIL HYDROCHLORIDE OD [Concomitant]
     Indication: DEMENTIA
     Dosage: 3 MG, QD, MORNING
     Dates: start: 20181010, end: 20181016
  10. FP-OD [Concomitant]
     Active Substance: SELEGILINE HYDROCHLORIDE
     Dosage: 2.5 MG, 1D
     Dates: start: 201701, end: 20171225
  11. FP-OD [Concomitant]
     Active Substance: SELEGILINE HYDROCHLORIDE
     Dosage: 2.5 MG, 1D
     Dates: end: 20180822
  12. REQUIP [Suspect]
     Active Substance: ROPINIROLE HYDROCHLORIDE
     Indication: PARKINSON^S DISEASE
     Dosage: UNK
     Route: 048
  13. REQUIP [Suspect]
     Active Substance: ROPINIROLE HYDROCHLORIDE
     Dosage: 2 MG, BID
     Route: 048
     Dates: start: 20171210

REACTIONS (12)
  - Gait disturbance [Unknown]
  - Treatment noncompliance [Unknown]
  - Motor dysfunction [Unknown]
  - Abnormal behaviour [Unknown]
  - Oedema peripheral [Unknown]
  - Incontinence [Unknown]
  - Hallucination [Not Recovered/Not Resolved]
  - Delusion [Not Recovered/Not Resolved]
  - Irregular sleep wake rhythm disorder [Recovering/Resolving]
  - Off label use [Unknown]
  - Delirium [Not Recovered/Not Resolved]
  - Inappropriate schedule of product administration [Unknown]

NARRATIVE: CASE EVENT DATE: 201712
